FAERS Safety Report 7947310 (Version 2)
Quarter: 2012Q4

REPORT INFORMATION
  Report Type: 
  Country: GB (occurrence: GB)
  Receive Date: 20110517
  Receipt Date: 20120830
  Transmission Date: 20130627
  Serious: Yes (Other)
  Sender: FDA-Public Use
  Company Number: GB-MYLANLABS-2011S1009146

PATIENT
  Age: 89 Year
  Sex: Male
  Weight: 54 kg

DRUGS (12)
  1. WARFARIN [Suspect]
     Indication: DEEP VEIN THROMBOSIS
     Route: 048
  2. WARFARIN [Interacting]
     Indication: PULMONARY EMBOLISM
     Route: 048
  3. WARFARIN [Interacting]
     Indication: DEEP VEIN THROMBOSIS
     Route: 048
  4. WARFARIN [Interacting]
     Indication: PULMONARY EMBOLISM
     Route: 048
  5. ILOPROST [Interacting]
     Indication: PERIPHERAL ISCHAEMIA
     Route: 042
  6. PARACETAMOL [Interacting]
     Indication: ANALGESIC THERAPY
  7. ALFACALCIDOL [Concomitant]
     Indication: PRODUCT USED FOR UNKNOWN INDICATION
  8. CALCIUM + VITAMIN D /01483701/ [Concomitant]
     Indication: PRODUCT USED FOR UNKNOWN INDICATION
  9. CODEINE PHOSPHATE [Concomitant]
     Indication: ANALGESIC THERAPY
  10. ERGOCALCIFEROL [Concomitant]
     Indication: PRODUCT USED FOR UNKNOWN INDICATION
  11. FUROSEMIDE [Concomitant]
     Indication: PRODUCT USED FOR UNKNOWN INDICATION
  12. TIMOLOL [Concomitant]
     Indication: GLAUCOMA
     Route: 061

REACTIONS (2)
  - Drug interaction [Recovered/Resolved]
  - International normalised ratio increased [Recovered/Resolved]
